FAERS Safety Report 21210567 (Version 1)
Quarter: 2022Q3

REPORT INFORMATION
  Report Type: Spontaneous
  Country: US (occurrence: None)
  Receive Date: 20220815
  Receipt Date: 20220815
  Transmission Date: 20221027
  Serious: Yes (Life-Threatening)
  Sender: FDA-Public Use
  Company Number: US-ROCHE-3159256

PATIENT
  Age: 50 Year
  Sex: Female
  Weight: 57.658 kg

DRUGS (4)
  1. OCREVUS [Suspect]
     Active Substance: OCRELIZUMAB
     Indication: Multiple sclerosis
     Route: 042
     Dates: start: 202202
  2. BACLOFEN [Concomitant]
     Active Substance: BACLOFEN
     Indication: Muscle spasms
  3. DALFAMPRIDINE [Concomitant]
     Active Substance: DALFAMPRIDINE
  4. WELLBUTRIN XL [Concomitant]
     Active Substance: BUPROPION HYDROCHLORIDE

REACTIONS (3)
  - Papilloma viral infection [Recovering/Resolving]
  - Anal cancer [Recovering/Resolving]
  - Immunosuppression [Unknown]

NARRATIVE: CASE EVENT DATE: 20220805
